FAERS Safety Report 10747375 (Version 1)
Quarter: 2015Q1

REPORT INFORMATION
  Report Type: Spontaneous
  Country: US (occurrence: None)
  Receive Date: 20150127
  Receipt Date: 20150127
  Transmission Date: 20150721
  Serious: Yes (Other)
  Sender: FDA-Public Use
  Company Number: 1541558

PATIENT
  Age: 40 Year
  Sex: Female
  Weight: 65.77 kg

DRUGS (9)
  1. NEURONTIN [Concomitant]
     Active Substance: GABAPENTIN
  2. PRILOSEC [Concomitant]
     Active Substance: OMEPRAZOLE MAGNESIUM
  3. FENTANYL TRANSDERMAL SYSTEM [Concomitant]
     Active Substance: FENTANYL
  4. LITHOBID [Suspect]
     Active Substance: LITHIUM CARBONATE
     Indication: BIPOLAR DISORDER
     Dosage: 1 TABLET
     Route: 048
     Dates: start: 20141224, end: 20150119
  5. CLONAZEPAM. [Concomitant]
     Active Substance: CLONAZEPAM
  6. WELLBUTRIN [Concomitant]
     Active Substance: BUPROPION HYDROCHLORIDE
  7. CLONODINE GENERIC PATCH [Concomitant]
     Active Substance: CLONIDINE
  8. PARNATE [Concomitant]
     Active Substance: TRANYLCYPROMINE SULFATE
  9. HISTORY OF LEXAPRO [Concomitant]

REACTIONS (11)
  - Anger [None]
  - Abdominal pain [None]
  - Aggression [None]
  - Disinhibition [None]
  - Hyperphagia [None]
  - Intentional self-injury [None]
  - Weight increased [None]
  - Homicidal ideation [None]
  - Mental impairment [None]
  - Contusion [None]
  - Abdominal pain upper [None]

NARRATIVE: CASE EVENT DATE: 201412
